FAERS Safety Report 10527718 (Version 1)
Quarter: 2014Q4

REPORT INFORMATION
  Report Type: Spontaneous
  Country: US (occurrence: None)
  Receive Date: 20141016
  Receipt Date: 20141016
  Transmission Date: 20150528
  Serious: No
  Sender: FDA-Public Use
  Company Number: None

PATIENT
  Age: 39 Year
  Sex: Female
  Weight: 83.92 kg

DRUGS (1)
  1. BELVIQ [Suspect]
     Active Substance: LORCASERIN HYDROCHLORIDE
     Indication: WEIGHT DECREASED

REACTIONS (6)
  - Anxiety [None]
  - Muscle twitching [None]
  - Muscle spasms [None]
  - Tremor [None]
  - Drug dose omission [None]
  - Fatigue [None]

NARRATIVE: CASE EVENT DATE: 20140904
